FAERS Safety Report 13690404 (Version 1)
Quarter: 2017Q2

REPORT INFORMATION
  Report Type: Spontaneous
  Country: JP (occurrence: JP)
  Receive Date: 20170626
  Receipt Date: 20170626
  Transmission Date: 20170830
  Serious: Yes (Death, Hospitalization)
  Sender: FDA-Public Use
  Company Number: JP-BAYER-2017-114614

PATIENT
  Age: 66 Year
  Sex: Female

DRUGS (3)
  1. BERAPROST SODIUM [Concomitant]
     Active Substance: BERAPROST SODIUM
     Dosage: UNK
     Route: 048
  2. EDOXABAN [Concomitant]
     Active Substance: EDOXABAN TOSYLATE
     Dosage: UNK
     Route: 048
  3. ADEMPAS [Suspect]
     Active Substance: RIOCIGUAT
     Indication: PULMONARY HYPERTENSION
     Dosage: DAILY DOSE 3 MG
     Route: 048
     Dates: start: 201705, end: 20170612

REACTIONS (3)
  - Platelet count decreased [Fatal]
  - Disseminated intravascular coagulation [Fatal]
  - Gastrointestinal haemorrhage [None]

NARRATIVE: CASE EVENT DATE: 20170611
